FAERS Safety Report 18677814 (Version 1)
Quarter: 2020Q4

REPORT INFORMATION
  Report Type: Spontaneous
  Country: US (occurrence: US)
  Receive Date: 20201229
  Receipt Date: 20201229
  Transmission Date: 20210114
  Serious: No
  Sender: FDA-Public Use
  Company Number: US-009507513-2012USA011260

PATIENT
  Age: 58 Year
  Sex: Female

DRUGS (2)
  1. KEYTRUDA [Suspect]
     Active Substance: PEMBROLIZUMAB
     Indication: MALIGNANT MELANOMA STAGE II
     Dosage: UNK UNK, Q3W
     Route: 042
  2. TAVOKINOGENE TELSEPLASMID. [Suspect]
     Active Substance: TAVOKINOGENE TELSEPLASMID
     Indication: MALIGNANT MELANOMA STAGE II
     Dosage: DAYS 1, 5, AND 8 WERE GIVEN EVERY SIX WEEKS

REACTIONS (1)
  - Product use issue [Unknown]
